FAERS Safety Report 11129707 (Version 1)
Quarter: 2015Q2

REPORT INFORMATION
  Report Type: Spontaneous
  Country: US (occurrence: US)
  Receive Date: 20150521
  Receipt Date: 20150521
  Transmission Date: 20150821
  Serious: No
  Sender: FDA-Public Use
  Company Number: US-MALLINCKRODT-QSC-2014-0319

PATIENT
  Age: 47 Year
  Sex: Female

DRUGS (1)
  1. H.P. ACTHAR [Suspect]
     Active Substance: CORTICOTROPIN
     Indication: POLYMYOSITIS
     Dosage: 80 UNITS, BIW
     Dates: start: 20140414

REACTIONS (6)
  - Fatigue [Unknown]
  - Sensitivity to weather change [Unknown]
  - Drug effect incomplete [Unknown]
  - Weight increased [Unknown]
  - Cushingoid [Unknown]
  - Swelling face [Unknown]

NARRATIVE: CASE EVENT DATE: 2014
